FAERS Safety Report 21007973 (Version 1)
Quarter: 2022Q2

REPORT INFORMATION
  Report Type: Report from Study
  Country: US (occurrence: US)
  Receive Date: 20220627
  Receipt Date: 20220627
  Transmission Date: 20220721
  Serious: Yes (Hospitalization, Other)
  Sender: FDA-Public Use
  Company Number: US-GILEAD-2022-0586389

PATIENT
  Age: 13 Year
  Sex: Male

DRUGS (19)
  1. AZTREONAM LYSINE [Suspect]
     Active Substance: AZTREONAM LYSINE
     Indication: Urea cycle disorder
     Dosage: 75 MG, TID, 28/28
     Route: 055
     Dates: start: 20170811
  2. CLOBAZAM [Concomitant]
     Active Substance: CLOBAZAM
  3. CULTURELLE [Concomitant]
     Active Substance: LACTOBACILLUS RHAMNOSUS
  4. VALPROATE SODIUM [Concomitant]
     Active Substance: VALPROATE SODIUM
  5. DIASTATIN [Concomitant]
  6. DUONEB [Concomitant]
     Active Substance: ALBUTEROL SULFATE\IPRATROPIUM BROMIDE
  7. FAMOTIDINE [Concomitant]
     Active Substance: FAMOTIDINE
  8. FLUTICASONE [Concomitant]
     Active Substance: FLUTICASONE
  9. IBUPROFEN [Concomitant]
     Active Substance: IBUPROFEN
  10. KEPPRA [Concomitant]
     Active Substance: LEVETIRACETAM
  11. LEVOVARNITIN [Concomitant]
  12. PROVENTIL [Concomitant]
     Active Substance: ALBUTEROL
  13. PULMICORT TURBUHALER [Concomitant]
     Active Substance: BUDESONIDE
  14. ROBINUL [Concomitant]
     Active Substance: GLYCOPYRROLATE
  15. SINGULAIR [Concomitant]
     Active Substance: MONTELUKAST SODIUM
  16. SODIUM CHLORIDE [Concomitant]
     Active Substance: SODIUM CHLORIDE
  17. TOBRAMYCIN [Concomitant]
     Active Substance: TOBRAMYCIN
  18. TOPAMAX [Concomitant]
     Active Substance: TOPIRAMATE
  19. TYLENOL [Concomitant]
     Active Substance: ACETAMINOPHEN

REACTIONS (4)
  - Tracheal disorder [Recovered/Resolved]
  - Urinary tract infection [Recovered/Resolved]
  - Pneumonia [Recovered/Resolved]
  - Off label use [Unknown]

NARRATIVE: CASE EVENT DATE: 20220519
